FAERS Safety Report 13377502 (Version 3)
Quarter: 2017Q2

REPORT INFORMATION
  Report Type: Spontaneous
  Country: IT (occurrence: IT)
  Receive Date: 20170328
  Receipt Date: 20170407
  Transmission Date: 20170830
  Serious: Yes (Other)
  Sender: FDA-Public Use
  Company Number: IT-TEVA-752895ACC

PATIENT
  Age: 36 Year
  Sex: Female
  Weight: 76 kg

DRUGS (2)
  1. OXALIPLATIN. [Suspect]
     Active Substance: OXALIPLATIN
     Indication: COLON CANCER
     Dosage: 175 MG CYCLICAL
     Route: 042
     Dates: start: 20161013, end: 20170216
  2. XELODA - 500 MG COMPRESSE FILMRIVESTITE [Concomitant]
     Indication: PRODUCT USED FOR UNKNOWN INDICATION
     Dosage: 2500 MG
     Route: 048

REACTIONS (1)
  - Joint stiffness [Recovering/Resolving]

NARRATIVE: CASE EVENT DATE: 20170217
